FAERS Safety Report 7957280-5 (Version None)
Quarter: 2011Q4

REPORT INFORMATION
  Report Type: 
  Country: None (occurrence: None)
  Receive Date: 20111201
  Receipt Date: 20111116
  Transmission Date: 20120403
  Serious: Yes (Other)
  Sender: FDA-Public Use
  Company Number: 1000025720

PATIENT
  Age: 69 Year
  Sex: Male

DRUGS (5)
  1. CITALOPRAM (CITALOPRAM HYDROBROMIDE) (CITALOPRAM HYDROBROMIDE) [Concomitant]
  2. RISPERIDONE [Suspect]
     Dosage: 5 MG (5 MG, 1 IN 1 D), ORAL
     Route: 048
     Dates: start: 20111117
  3. RISPERIDONE [Suspect]
     Dosage: 25 MG (25 MG, 1 IN 1 D), ORAL
     Route: 048
     Dates: end: 20111116
  4. MEMANTINE HCL [Suspect]
     Indication: DEMENTIA ALZHEIMER'S TYPE
     Dosage: 10 MG (10 MG, IN THE MORNING), ORAL AT LEAST 2 YEARS AGO  - ONGOING
  5. CARBAMAZEPINE [Concomitant]

REACTIONS (10)
  - GENERAL PHYSICAL HEALTH DETERIORATION [None]
  - DIZZINESS [None]
  - SPEECH DISORDER [None]
  - DYSPHAGIA [None]
  - HYPOTENSION [None]
  - HALLUCINATION [None]
  - TONGUE DISORDER [None]
  - DYSKINESIA [None]
  - FALL [None]
  - EYE DISORDER [None]
